FAERS Safety Report 8838568 (Version 1)
Quarter: 2012Q4

REPORT INFORMATION
  Report Type: 
  Country: US (occurrence: US)
  Receive Date: 20121012
  Receipt Date: 20121012
  Transmission Date: 20130627
  Serious: Yes (Death, Other)
  Sender: FDA-Public Use
  Company Number: US-CELGENEUS-163-20785-12101334

PATIENT
  Age: 96 Year
  Sex: Female

DRUGS (2)
  1. THALOMID [Suspect]
     Indication: MONOCLONAL GAMMOPATHY
     Dosage: 50 Milligram
     Route: 048
     Dates: start: 200710
  2. THALOMID [Suspect]
     Dosage: 100 Milligram
     Route: 048
     Dates: start: 200806

REACTIONS (7)
  - Death [Fatal]
  - Fracture [Unknown]
  - Fall [Unknown]
  - Nutritional condition abnormal [Unknown]
  - Asthenia [Unknown]
  - Decreased appetite [Unknown]
  - Weight decreased [Unknown]
